FAERS Safety Report 6382257-3 (Version None)
Quarter: 2009Q3

REPORT INFORMATION
  Report Type: 
  Country: None (occurrence: None)
  Receive Date: 20090930
  Receipt Date: 20090922
  Transmission Date: 20100115
  Serious: Yes (Other)
  Sender: FDA-Public Use
  Company Number: GB-ASTRAZENECA-2009SE08538

PATIENT
  Age: 69 Year
  Sex: Male
  Weight: 69.9 kg

DRUGS (2)
  1. PULMICORT [Suspect]
     Indication: ASTHMA
     Route: 055
     Dates: start: 20090712, end: 20090724
  2. BRICANYL [Concomitant]
     Indication: ASTHMA
     Route: 055
     Dates: start: 19900101

REACTIONS (2)
  - DRUG INEFFECTIVE [None]
  - PALPITATIONS [None]
